FAERS Safety Report 18187338 (Version 1)
Quarter: 2020Q3

REPORT INFORMATION
  Report Type: Spontaneous
  Country: US (occurrence: US)
  Receive Date: 20200824
  Receipt Date: 20200824
  Transmission Date: 20201103
  Serious: Yes (Other)
  Sender: FDA-Public Use
  Company Number: None

PATIENT
  Age: 58 Year
  Sex: Male

DRUGS (1)
  1. PRALUENT [Suspect]
     Active Substance: ALIROCUMAB
     Indication: HYPERLIPIDAEMIA
     Dosage: ?          OTHER FREQUENCY:Q 2 WEEKS;?
     Route: 058

REACTIONS (4)
  - Injection site pain [None]
  - Nasal congestion [None]
  - Arthralgia [None]
  - Injection site haemorrhage [None]

NARRATIVE: CASE EVENT DATE: 20200810
